FAERS Safety Report 4772884-9 (Version None)
Quarter: 2005Q3

REPORT INFORMATION
  Report Type: 
  Country: None (occurrence: None)
  Receive Date: 20050916
  Receipt Date: 20050913
  Transmission Date: 20060218
  Serious: Yes (Death)
  Sender: FDA-Public Use
  Company Number: 2005AL003567

PATIENT
  Sex: Male

DRUGS (2)
  1. MORPHINE SULFATE [Suspect]
     Dosage: 100 MG; BID
  2. CLONIDINE [Concomitant]

REACTIONS (1)
  - DRUG TOXICITY [None]
